FAERS Safety Report 6441258-7 (Version None)
Quarter: 2009Q4

REPORT INFORMATION
  Report Type: 
  Country: None (occurrence: None)
  Receive Date: 20091116
  Receipt Date: 20091112
  Transmission Date: 20100525
  Serious: Yes (Other)
  Sender: FDA-Public Use
  Company Number: US-ELI_LILLY_AND_COMPANY-US200911003256

PATIENT
  Age: 62 Year
  Sex: Female
  Weight: 87.075 kg

DRUGS (20)
  1. BYETTA [Suspect]
     Indication: TYPE 2 DIABETES MELLITUS
     Dosage: 5 UG, UNKNOWN
     Route: 058
     Dates: start: 20070101
  2. BYETTA [Suspect]
     Dosage: 10 UG, UNKNOWN
     Route: 058
     Dates: end: 20090804
  3. PRIMIDONE [Concomitant]
     Dosage: 50 MG, DAILY (1/D)
  4. POTASSIUM CHLORIDE [Concomitant]
     Dosage: 40 MEQ, DAILY (1/D)
  5. VITAMIN D [Concomitant]
     Dosage: 50000 U, WEEKLY (1/W)
  6. ASPIRIN [Concomitant]
     Dosage: 81 MG, DAILY (1/D)
  7. MULTI-VITAMIN [Concomitant]
     Dosage: UNK, DAILY (1/D)
  8. QUINIDINE HCL [Concomitant]
     Dosage: UNK, DAILY (1/D)
  9. CARAFATE [Concomitant]
     Dosage: UNK G, 4/D
  10. ZOCOR [Concomitant]
     Dosage: 40 MG, DAILY (1/D)
     Dates: end: 20090804
  11. SYNTHROID [Concomitant]
     Dosage: 50 UG, DAILY (1/D)
  12. CELEBREX [Concomitant]
     Dosage: 20 MG, DAILY (1/D)
  13. LASIX [Concomitant]
     Dosage: 20 MG, DAILY (1/D)
  14. LOTREL [Concomitant]
     Dosage: UNK, DAILY (1/D)
     Dates: end: 20090804
  15. CELEXA [Concomitant]
     Dosage: 60 MG, DAILY (1/D)
  16. LORAZEPAM [Concomitant]
     Dosage: 0.5 MG, 2/D
  17. LORTAB [Concomitant]
     Dosage: 5 MG, AS NEEDED
     Dates: end: 20090804
  18. ALLEGRA [Concomitant]
     Dosage: 180 MG, DAILY (1/D)
  19. CYMBALTA [Concomitant]
     Dosage: 30 MG, DAILY (1/D)
  20. NEXIUM [Concomitant]
     Dosage: 40 MG, 2/D

REACTIONS (1)
  - PANCREATITIS ACUTE [None]
